FAERS Safety Report 4773529-4 (Version None)
Quarter: 2005Q3

REPORT INFORMATION
  Report Type: 
  Country: None (occurrence: None)
  Receive Date: 20050914
  Receipt Date: 20041016
  Transmission Date: 20060218
  Serious: Yes (Other)
  Sender: FDA-Public Use
  Company Number: 163-20785-04100507 (0)

PATIENT
  Age: 62 Year
  Sex: Female
  Weight: 99.3377 kg

DRUGS (7)
  1. THALOMID [Suspect]
     Indication: MYELOID METAPLASIA
     Dosage: 50 MG, QHS, ORAL
     Route: 048
     Dates: start: 20040927, end: 20041001
  2. ATACAND HCT (BLOPRESS PLUS) (UNKNOWN) [Concomitant]
  3. FOLIC ACID (FOLIC ACID) (UNKNOWN) [Concomitant]
  4. SYNTHROID [Concomitant]
  5. FOSAMAX (ALENDRONATE SODIUM) (UNKNOWN) [Concomitant]
  6. PROTONIX (PANTOPRAZOLE) (UNKNOWN) [Concomitant]
  7. HUMALOG [Concomitant]

REACTIONS (3)
  - ANAEMIA [None]
  - RASH ERYTHEMATOUS [None]
  - UPPER RESPIRATORY TRACT INFECTION [None]
